FAERS Safety Report 9463682 (Version 2)
Quarter: 2013Q3

REPORT INFORMATION
  Report Type: Report from Study
  Country: MX (occurrence: MX)
  Receive Date: 20130819
  Receipt Date: 20130910
  Transmission Date: 20140515
  Serious: Yes (Hospitalization, Other)
  Sender: FDA-Public Use
  Company Number: PHHY2013MX088555

PATIENT
  Age: 60 Year
  Sex: Female

DRUGS (4)
  1. GALVUS MET [Suspect]
     Indication: DIABETES MELLITUS
     Dosage: 1 DF, (500 MG METF/ 50 MG VILDA/ DAILY
     Route: 048
     Dates: start: 2012
  2. GALVUS MET [Suspect]
     Dosage: 1 DF, (1000 MG METF/ 50 MG VILDA/ DAILY
     Route: 048
     Dates: start: 2012
  3. AKSPRI [Suspect]
     Indication: DIABETES MELLITUS
     Dosage: 500 MG, DAILY
     Route: 048
  4. EXFORGE HCT [Suspect]
     Indication: HYPERTENSION
     Dosage: 1 DF, (320 MG VALS/ 10 MG AMLO/ 25 MG HYDRO) DAILY
     Route: 048

REACTIONS (5)
  - Blood glucose increased [Recovered/Resolved]
  - Arrhythmia [Recovered/Resolved]
  - Chest discomfort [Recovered/Resolved]
  - Dry mouth [Recovered/Resolved]
  - Fatigue [Recovered/Resolved]
